FAERS Safety Report 5057353-3 (Version None)
Quarter: 2006Q3

REPORT INFORMATION
  Report Type: 
  Country: None (occurrence: None)
  Receive Date: 20060721
  Receipt Date: 20050825
  Transmission Date: 20061208
  Serious: No
  Sender: FDA-Public Use
  Company Number: US-GLAXOSMITHKLINE-A0571840A

PATIENT
  Age: 44 Year
  Sex: Male

DRUGS (3)
  1. AVANDIA [Suspect]
     Route: 048
  2. METFORMIN [Concomitant]
  3. ZANTAC [Concomitant]

REACTIONS (7)
  - DIZZINESS [None]
  - ERYTHEMA [None]
  - EYE DISORDER [None]
  - FLUSHING [None]
  - NAUSEA [None]
  - NERVOUSNESS [None]
  - RASH MACULAR [None]
